FAERS Safety Report 11913316 (Version 1)
Quarter: 2016Q1

REPORT INFORMATION
  Report Type: Spontaneous
  Country: US (occurrence: None)
  Receive Date: 20160112
  Receipt Date: 20160112
  Transmission Date: 20160526
  Serious: Yes (Other)
  Sender: FDA-Public Use
  Company Number: None

PATIENT
  Age: 74 Year
  Sex: Female
  Weight: 102.51 kg

DRUGS (1)
  1. ORENCIA [Suspect]
     Active Substance: ABATACEPT
     Indication: RHEUMATOID ARTHRITIS
     Dosage: 125 MG/1 ML ONCE A WEEK SUBCUTANEOUS
     Route: 058
     Dates: start: 20141203, end: 20160106

REACTIONS (2)
  - Nausea [None]
  - Drug effect decreased [None]

NARRATIVE: CASE EVENT DATE: 20151223
